FAERS Safety Report 10264514 (Version 2)
Quarter: 2014Q3

REPORT INFORMATION
  Report Type: Spontaneous
  Country: US (occurrence: US)
  Receive Date: 20140627
  Receipt Date: 20140701
  Transmission Date: 20150326
  Serious: Yes (Other)
  Sender: FDA-Public Use
  Company Number: US-SUN PHARMACEUTICAL INDUSTRIES LTD-2014SUN01423

PATIENT

DRUGS (5)
  1. ST. JOHN?S WORT [Concomitant]
  2. ALPRAZOLAM TABS C-IV 2MG [Suspect]
     Active Substance: ALPRAZOLAM
     Indication: INSOMNIA
  3. ALPRAZOLAM TABS C-IV 2MG [Suspect]
     Active Substance: ALPRAZOLAM
     Indication: GENERALISED ANXIETY DISORDER
     Dosage: 4 MG, TID
     Route: 065
     Dates: start: 201311
  4. NIACIN. [Concomitant]
     Active Substance: NIACIN
  5. ALPRAZOLAM TABS C-IV 2MG [Suspect]
     Active Substance: ALPRAZOLAM
     Indication: CONVULSION

REACTIONS (6)
  - Restless legs syndrome [Not Recovered/Not Resolved]
  - Insomnia [Not Recovered/Not Resolved]
  - Panic attack [Not Recovered/Not Resolved]
  - Anxiety disorder [Not Recovered/Not Resolved]
  - Agitation [Not Recovered/Not Resolved]
  - Drug ineffective [Not Recovered/Not Resolved]

NARRATIVE: CASE EVENT DATE: 20140609
